FAERS Safety Report 24126108 (Version 2)
Quarter: 2024Q3

REPORT INFORMATION
  Report Type: Report from Study
  Country: JP (occurrence: JP)
  Receive Date: 20240723
  Receipt Date: 20240801
  Transmission Date: 20241016
  Serious: Yes (Life-Threatening, Other)
  Sender: INCYTE
  Company Number: JP-INCYTE CORPORATION-2023IN010251

PATIENT

DRUGS (14)
  1. PEMIGATINIB [Suspect]
     Active Substance: PEMIGATINIB
     Indication: Bile duct cancer
     Dosage: 13.5 MILLIGRAM, QD
     Route: 065
     Dates: start: 20230601, end: 20230614
  2. PEMIGATINIB [Suspect]
     Active Substance: PEMIGATINIB
     Indication: Cholangiocarcinoma
     Dosage: 13.5 MILLIGRAM, QD
     Route: 065
     Dates: start: 20230622, end: 20230705
  3. PEMIGATINIB [Suspect]
     Active Substance: PEMIGATINIB
     Dosage: 13.5 MILLIGRAM, QD
     Route: 065
     Dates: start: 20230713, end: 20230726
  4. PEMIGATINIB [Suspect]
     Active Substance: PEMIGATINIB
     Dosage: 13.5 MILLIGRAM, QD
     Route: 065
     Dates: start: 20230803, end: 20230816
  5. PEMIGATINIB [Suspect]
     Active Substance: PEMIGATINIB
     Dosage: 9 MILLIGRAM, QD
     Route: 065
     Dates: start: 20230921, end: 20231004
  6. PEMIGATINIB [Suspect]
     Active Substance: PEMIGATINIB
     Dosage: 9 MILLIGRAM, QD
     Route: 065
     Dates: start: 20231012, end: 20231025
  7. PEMIGATINIB [Suspect]
     Active Substance: PEMIGATINIB
     Dosage: 9 MILLIGRAM, QD
     Route: 065
     Dates: start: 20231102, end: 20231115
  8. PEMIGATINIB [Suspect]
     Active Substance: PEMIGATINIB
     Dosage: 9 MILLIGRAM, QD
     Route: 065
     Dates: start: 20231123, end: 20231206
  9. PEMIGATINIB [Suspect]
     Active Substance: PEMIGATINIB
     Dosage: 9 MILLIGRAM, QD
     Route: 065
     Dates: start: 20231214, end: 20231227
  10. PEMIGATINIB [Suspect]
     Active Substance: PEMIGATINIB
     Dosage: 9 MILLIGRAM, QD
     Route: 065
     Dates: start: 20240111, end: 20240124
  11. PEMIGATINIB [Suspect]
     Active Substance: PEMIGATINIB
     Dosage: 9 MILLIGRAM, QD
     Route: 065
     Dates: start: 20240215, end: 20240228
  12. PEMIGATINIB [Suspect]
     Active Substance: PEMIGATINIB
     Dosage: 9 MILLIGRAM, QD
     Route: 065
     Dates: start: 20240307, end: 20240320
  13. PEMIGATINIB [Suspect]
     Active Substance: PEMIGATINIB
     Dosage: 9 MILLIGRAM, QD
     Route: 065
     Dates: start: 20240404, end: 20240417
  14. PEMIGATINIB [Suspect]
     Active Substance: PEMIGATINIB
     Dosage: 9 MILLIGRAM, QD
     Route: 065
     Dates: start: 20240502, end: 20240507

REACTIONS (5)
  - Cholangiocarcinoma [Not Recovered/Not Resolved]
  - Renal impairment [Recovered/Resolved]
  - Hyperphosphataemia [Recovered/Resolved]
  - Nail disorder [Recovering/Resolving]
  - Palmar-plantar erythrodysaesthesia syndrome [Recovering/Resolving]

NARRATIVE: CASE EVENT DATE: 20230620
